FAERS Safety Report 19861329 (Version 1)
Quarter: 2021Q3

REPORT INFORMATION
  Report Type: Spontaneous
  Country: US (occurrence: US)
  Receive Date: 20210921
  Receipt Date: 20210921
  Transmission Date: 20211014
  Serious: Yes (Disabling, Other)
  Sender: FDA-Public Use
  Company Number: None

PATIENT
  Age: 54 Year
  Sex: Female
  Weight: 54 kg

DRUGS (12)
  1. SINGULAIR [Concomitant]
     Active Substance: MONTELUKAST SODIUM
  2. VITAMIN C [Concomitant]
     Active Substance: ASCORBIC ACID
  3. BUDESONIDE INHALATION SUSPENSION 0.5MG/2ML [Suspect]
     Active Substance: BUDESONIDE
     Indication: CHRONIC RHINOSINUSITIS WITH NASAL POLYPS
     Dosage: ?QUANTITY:1 VIAL;?OTHER ROUTE:IN 250ML OF SALINE SINUS RINSE?
     Dates: start: 20210507, end: 20210710
  4. ASMANEX [Concomitant]
     Active Substance: MOMETASONE FUROATE
  5. TOBRAMYCIN SINUS RINSE [Concomitant]
  6. MAGNESIUM [Concomitant]
     Active Substance: MAGNESIUM
  7. VIT. D [Concomitant]
     Active Substance: VITAMIN D NOS
  8. NASONEX [Concomitant]
     Active Substance: MOMETASONE FUROATE
  9. RESTASIS [Concomitant]
     Active Substance: CYCLOSPORINE
  10. CLARITIN [Concomitant]
     Active Substance: LORATADINE
  11. FOSTEUM PLUS [Concomitant]
  12. ACETAMINOPHEN. [Concomitant]
     Active Substance: ACETAMINOPHEN

REACTIONS (15)
  - Sinusitis bacterial [None]
  - Ageusia [None]
  - Culture positive [None]
  - Parotid gland enlargement [None]
  - Sensation of foreign body [None]
  - Candida infection [None]
  - Suspected product contamination [None]
  - Enterobacter infection [None]
  - Headache [None]
  - Throat tightness [None]
  - Poor quality sleep [None]
  - Oropharyngeal pain [None]
  - Ear pruritus [None]
  - Product contamination microbial [None]
  - Anosmia [None]

NARRATIVE: CASE EVENT DATE: 20210725
